FAERS Safety Report 5345608-4 (Version None)
Quarter: 2007Q2

REPORT INFORMATION
  Report Type: 
  Country: None (occurrence: None)
  Receive Date: 20070424
  Receipt Date: 20060427
  Transmission Date: 20071010
  Serious: Yes (Other)
  Sender: FDA-Public Use
  Company Number: TEST00206001490

PATIENT
  Age: 73 Year
  Sex: Male
  Weight: 84.1 kg

DRUGS (1)
  1. ANDROGEL (TESTOSTERONE 1% GEL) [Suspect]
     Indication: BLOOD TESTOSTERONE DECREASED
     Dosage: 10 GRAM(S) QD TRANSCUTANEOUS DAILY DOSE:  10 GRAM(S)
     Dates: start: 20050228, end: 20060420

REACTIONS (1)
  - PROSTATE CANCER [None]
